FAERS Safety Report 5191910-9 (Version None)
Quarter: 2006Q4

REPORT INFORMATION
  Report Type: 
  Country: None (occurrence: None)
  Receive Date: 20061227
  Receipt Date: 20061116
  Transmission Date: 20070319
  Serious: Yes (Hospitalization, Disabling, Other)
  Sender: FDA-Public Use
  Company Number: PHFR2006GB03412

PATIENT
  Age: 12 Year
  Sex: Male

DRUGS (1)
  1. RITALIN-SR [Suspect]
     Indication: ATTENTION DEFICIT/HYPERACTIVITY DISORDER
     Dosage: 60MG/DAY
     Route: 048
     Dates: start: 20040101, end: 20061201

REACTIONS (3)
  - CEREBROVASCULAR ACCIDENT [None]
  - DYSPHONIA [None]
  - HYPOREFLEXIA [None]
